FAERS Safety Report 5779986-9 (Version None)
Quarter: 2008Q2

REPORT INFORMATION
  Report Type: 
  Country: None (occurrence: None)
  Receive Date: 20080620
  Receipt Date: 20080612
  Transmission Date: 20081010
  Serious: Yes (Other)
  Sender: FDA-Public Use
  Company Number: US-JNJFOC-20080603643

PATIENT
  Sex: Female

DRUGS (3)
  1. ULTRAM ER [Suspect]
     Indication: PAIN IN EXTREMITY
     Route: 048
  2. ULTRAM ER [Suspect]
     Indication: BACK PAIN
     Route: 048
  3. RELAFEN [Concomitant]
     Indication: SWELLING
     Route: 065

REACTIONS (1)
  - BLOOD CHOLESTEROL INCREASED [None]
